FAERS Safety Report 20365851 (Version 2)
Quarter: 2022Q1

REPORT INFORMATION
  Report Type: Report from Study
  Country: GT (occurrence: GT)
  Receive Date: 20220123
  Receipt Date: 20220302
  Transmission Date: 20220423
  Serious: Yes (Other)
  Sender: FDA-Public Use
  Company Number: GT-NOVARTISPH-NVSC2022GT012406

PATIENT
  Age: 72 Year
  Sex: Male

DRUGS (2)
  1. EXFORGE [Suspect]
     Active Substance: AMLODIPINE BESYLATE\VALSARTAN
     Indication: Product used for unknown indication
     Dosage: UNK, 10/320 MG
     Route: 065
     Dates: start: 202106
  2. EXFORGE [Suspect]
     Active Substance: AMLODIPINE BESYLATE\VALSARTAN
     Dosage: UNK, 5/160 MG IN MORNING BEFORE HEMODIALYSIS AND 10/320 MG AFTER HEMODIALYSIS
     Route: 065
     Dates: start: 202108

REACTIONS (7)
  - Cerebrovascular accident [Not Recovered/Not Resolved]
  - Hip fracture [Unknown]
  - Gait disturbance [Unknown]
  - Neoplasm malignant [Unknown]
  - Malaise [Unknown]
  - Underweight [Unknown]
  - Blood pressure increased [Unknown]
